FAERS Safety Report 7242086-5 (Version None)
Quarter: 2011Q1

REPORT INFORMATION
  Report Type: 
  Country: None (occurrence: None)
  Receive Date: 20110124
  Receipt Date: 20110119
  Transmission Date: 20110831
  Serious: Yes (Other)
  Sender: FDA-Public Use
  Company Number: AU-PFIZER INC-2011014636

PATIENT
  Age: 30 Year
  Sex: Male

DRUGS (2)
  1. SALAZOPYRIN [Suspect]
     Indication: COLITIS
     Dosage: 3 G PER DAY IN THREE DIVIDED DOSES
  2. SALAZOPYRIN [Suspect]
     Dosage: 4.5 G PER DAY IN THREE DIVIDED DOSES

REACTIONS (1)
  - ANAEMIA [None]
